FAERS Safety Report 4336154-5 (Version None)
Quarter: 2004Q2

REPORT INFORMATION
  Report Type: 
  Country: None (occurrence: None)
  Receive Date: 20040407
  Receipt Date: 20040331
  Transmission Date: 20050107
  Serious: Yes (Other)
  Sender: FDA-Public Use
  Company Number: NLWYE566106FEB04

PATIENT
  Age: 61 Year
  Sex: Male

DRUGS (4)
  1. RAPAMUNE [Suspect]
     Indication: PROPHYLAXIS AGAINST TRANSPLANT REJECTION
     Dosage: 3 MG 1X PER 1 DAY ORAL
     Route: 048
     Dates: start: 20030829, end: 20040115
  2. MYCOPHENOLATE MOFETIL (MYCOPHENOLATE MOFETIL) [Concomitant]
  3. PREDNISONE [Concomitant]
  4. ZENAPAX [Concomitant]

REACTIONS (5)
  - BLOOD BILIRUBIN INCREASED [None]
  - DRUG LEVEL FLUCTUATING [None]
  - KIDNEY TRANSPLANT REJECTION [None]
  - MICROANGIOPATHY [None]
  - OEDEMA [None]
